FAERS Safety Report 21199627 (Version 1)
Quarter: 2022Q3

REPORT INFORMATION
  Report Type: Report from Study
  Country: US (occurrence: US)
  Receive Date: 20220811
  Receipt Date: 20220811
  Transmission Date: 20221027
  Serious: No
  Sender: FDA-Public Use
  Company Number: US-NOVARTISTESTPH-NVSC2022US181004

PATIENT
  Sex: Female

DRUGS (1)
  1. VIJOICE [Suspect]
     Active Substance: ALPELISIB
     Indication: Product used for unknown indication
     Dosage: 50 MG, QD, START DATE OF THE DRUG WAS MENTIONED AS 8 JUL 2022 (START DATE WAS APPROXIMATE)
     Route: 048

REACTIONS (2)
  - Dry skin [Unknown]
  - Diarrhoea [Unknown]
